FAERS Safety Report 14783255 (Version 16)
Quarter: 2021Q2

REPORT INFORMATION
  Report Type: Spontaneous
  Country: US (occurrence: US)
  Receive Date: 20180420
  Receipt Date: 20210618
  Transmission Date: 20210716
  Serious: Yes (Hospitalization, Other)
  Sender: FDA-Public Use
  Company Number: US-PFIZER INC-2018163058

PATIENT
  Age: 56 Year
  Sex: Female
  Weight: 76.19 kg

DRUGS (7)
  1. RELPAX [Suspect]
     Active Substance: ELETRIPTAN HYDROBROMIDE
     Indication: MIGRAINE
     Dosage: 40 MG, AS NEEDED (NOT EVERY DAY, ONLY GET 7 A MONTH)
     Route: 048
  2. SYNTHROID [Concomitant]
     Active Substance: LEVOTHYROXINE SODIUM
     Indication: HYPOTHYROIDISM
     Dosage: 20 UG, SINGLE
     Route: 048
  3. LIOTHYRONINE [Concomitant]
     Active Substance: LIOTHYRONINE
     Dosage: UNK
     Dates: start: 201602
  4. SYNTHROID [Concomitant]
     Active Substance: LEVOTHYROXINE SODIUM
     Dosage: 50 UG, 1X/DAY
     Route: 048
  5. RELPAX [Suspect]
     Active Substance: ELETRIPTAN HYDROBROMIDE
     Dosage: 40 MG [MAY BE REPEATED 2 HOURS NO MORE THAN 2 DOSES IN 24 HOURS]
     Route: 048
  6. RELPAX [Suspect]
     Active Substance: ELETRIPTAN HYDROBROMIDE
     Indication: HEADACHE
     Dosage: 40 MG, AS NEEDED
     Route: 048
     Dates: start: 201303
  7. RELPAX [Suspect]
     Active Substance: ELETRIPTAN HYDROBROMIDE
     Dosage: 40 MG, AS NEEDED
     Route: 048

REACTIONS (24)
  - Road traffic accident [Unknown]
  - Anosmia [Unknown]
  - Fall [Unknown]
  - Intervertebral disc protrusion [Not Recovered/Not Resolved]
  - Productive cough [Not Recovered/Not Resolved]
  - Lung disorder [Not Recovered/Not Resolved]
  - Weight increased [Unknown]
  - Weight fluctuation [Not Recovered/Not Resolved]
  - Back pain [Not Recovered/Not Resolved]
  - COVID-19 [Recovered/Resolved]
  - Poor quality sleep [Not Recovered/Not Resolved]
  - Respiratory tract infection [Recovered/Resolved]
  - Epistaxis [Unknown]
  - Nausea [Unknown]
  - Anxiety [Unknown]
  - Neck pain [Not Recovered/Not Resolved]
  - Spinal disorder [Unknown]
  - Cough [Unknown]
  - Muscle tightness [Unknown]
  - Malaise [Not Recovered/Not Resolved]
  - Loss of personal independence in daily activities [Not Recovered/Not Resolved]
  - Pulmonary congestion [Unknown]
  - Mobility decreased [Not Recovered/Not Resolved]
  - Ageusia [Unknown]

NARRATIVE: CASE EVENT DATE: 2012
